FAERS Safety Report 22803236 (Version 2)
Quarter: 2024Q4

REPORT INFORMATION
  Report Type: Spontaneous
  Country: BR (occurrence: BR)
  Receive Date: 20230809
  Receipt Date: 20241205
  Transmission Date: 20250115
  Serious: Yes (Hospitalization)
  Sender: BAYER HEALTHCARE PHARMACEUTICALS INC.
  Company Number: BR-BAYER-2023A107804

PATIENT
  Age: 38 Year
  Sex: Female

DRUGS (2)
  1. MIRENA [Suspect]
     Active Substance: LEVONORGESTREL
     Dosage: 20?G/DAY
     Route: 015
     Dates: start: 20230530
  2. BUPRENORPHINE [Concomitant]
     Active Substance: BUPRENORPHINE
     Dosage: UNK
     Route: 062
     Dates: start: 20230721

REACTIONS (13)
  - Haemorrhoid operation [None]
  - Urticaria [Unknown]
  - Swelling face [Unknown]
  - Urticaria [Recovered/Resolved]
  - Pruritus [Not Recovered/Not Resolved]
  - Weight increased [None]
  - Pain in extremity [None]
  - Peripheral swelling [None]
  - Anxiety [None]
  - Vaginal haemorrhage [None]
  - Abdominal pain lower [None]
  - Premenstrual syndrome [None]
  - Axillary pain [None]

NARRATIVE: CASE EVENT DATE: 20230501
